FAERS Safety Report 13675808 (Version 1)
Quarter: 2017Q2

REPORT INFORMATION
  Report Type: Spontaneous
  Country: US (occurrence: US)
  Receive Date: 20170620
  Receipt Date: 20170620
  Transmission Date: 20170830
  Serious: Yes (Life-Threatening, Hospitalization, Disabling)
  Sender: FDA-Public Use
  Company Number: None

PATIENT
  Age: 55 Year
  Sex: Male
  Weight: 81 kg

DRUGS (3)
  1. CLONAZEPAM. [Suspect]
     Active Substance: CLONAZEPAM
     Indication: CHEST DISCOMFORT
     Dosage: ?          QUANTITY:1 TABLET(S);?
     Route: 048
     Dates: start: 20080101, end: 20160515
  2. STATIN [Concomitant]
     Active Substance: UNSPECIFIED INGREDIENT
  3. RAMAPRIL [Concomitant]

REACTIONS (5)
  - Sedation [None]
  - Product use issue [None]
  - Anxiety [None]
  - Drug withdrawal syndrome [None]
  - Insomnia [None]
